FAERS Safety Report 9322550 (Version 1)
Quarter: 2013Q2

REPORT INFORMATION
  Report Type: Spontaneous
  Country: DE (occurrence: DE)
  Receive Date: 20130531
  Receipt Date: 20130531
  Transmission Date: 20140414
  Serious: Yes (Hospitalization, Congenital Anomaly, Other)
  Sender: FDA-Public Use
  Company Number: DE-ASTRAZENECA-2013SE36457

PATIENT
  Sex: Male
  Weight: 4.9 kg

DRUGS (7)
  1. SEROQUEL [Suspect]
     Route: 064
     Dates: start: 20110806, end: 20120511
  2. KEPPRA [Suspect]
     Route: 064
     Dates: start: 20110806, end: 20120511
  3. RIVOTRIL [Suspect]
     Route: 064
     Dates: start: 20110806, end: 20120315
  4. LAMOTRIGIN [Suspect]
     Route: 064
     Dates: start: 20110806, end: 20120511
  5. STANGYL [Concomitant]
     Route: 064
     Dates: start: 20110806, end: 20111215
  6. EUTHYROX [Concomitant]
     Route: 064
     Dates: start: 20110806, end: 20120511
  7. HEROIN [Concomitant]
     Route: 064

REACTIONS (4)
  - Neonatal respiratory distress syndrome [Recovered/Resolved]
  - Dysmorphism [Unknown]
  - Drug withdrawal syndrome [Recovered/Resolved]
  - Convulsion [Recovered/Resolved]
